FAERS Safety Report 6664443-8 (Version None)
Quarter: 2010Q2

REPORT INFORMATION
  Report Type: 
  Country: None (occurrence: None)
  Receive Date: 20100401
  Receipt Date: 20100325
  Transmission Date: 20101027
  Serious: Yes (Other)
  Sender: FDA-Public Use
  Company Number: CA-AMGEN-QUU402081

PATIENT
  Sex: Female

DRUGS (11)
  1. NEULASTA [Suspect]
     Indication: CHEMOTHERAPY
     Route: 058
     Dates: start: 20091020
  2. NEUPOGEN [Suspect]
     Indication: CHEMOTHERAPY
  3. CAELYX [Concomitant]
  4. METOPROLOL TARTRATE [Concomitant]
     Route: 048
  5. DILAUDID [Concomitant]
     Route: 048
  6. METOCLOPRAMIDE [Concomitant]
     Route: 048
  7. COLACE [Concomitant]
     Route: 048
  8. TINZAPARIN SODIUM [Concomitant]
     Route: 058
  9. PROCHLORPERAZINE [Concomitant]
     Route: 048
  10. PANTOPRAZOLE [Concomitant]
     Route: 048
  11. COSOPT [Concomitant]
     Route: 047

REACTIONS (1)
  - FEBRILE NEUTROPENIA [None]
